FAERS Safety Report 17152698 (Version 1)
Quarter: 2019Q4

REPORT INFORMATION
  Report Type: Spontaneous
  Country: US (occurrence: US)
  Receive Date: 20191213
  Receipt Date: 20191213
  Transmission Date: 20200122
  Serious: Yes (Other)
  Sender: FDA-Public Use
  Company Number: US-NOVOPROD-644877

PATIENT
  Age: 62 Year
  Sex: Male
  Weight: 72.56 kg

DRUGS (1)
  1. LEVEMIR [Suspect]
     Active Substance: INSULIN DETEMIR
     Indication: TYPE 1 DIABETES MELLITUS
     Dosage: 14 IU, QD (STARTED ABOUT 3-5 YEARS)
     Route: 058

REACTIONS (3)
  - Glycosylated haemoglobin increased [Unknown]
  - Device malfunction [Unknown]
  - Blood glucose increased [Unknown]
